FAERS Safety Report 5916270-4 (Version None)
Quarter: 2008Q4

REPORT INFORMATION
  Report Type: 
  Country: None (occurrence: None)
  Receive Date: 20081013
  Receipt Date: 20081005
  Transmission Date: 20090506
  Serious: Yes (Other)
  Sender: FDA-Public Use
  Company Number: PHHY2008GB21979

PATIENT
  Sex: Male

DRUGS (2)
  1. CLOZARIL [Suspect]
     Indication: SCHIZOPHRENIA
     Dosage: UNK
     Dates: start: 20080821
  2. CLOZARIL [Suspect]
     Dosage: UNK
     Dates: start: 20080923

REACTIONS (3)
  - EOSINOPHIL COUNT INCREASED [None]
  - EOSINOPHILIA [None]
  - TACHYCARDIA [None]
